FAERS Safety Report 12056819 (Version 3)
Quarter: 2016Q1

REPORT INFORMATION
  Report Type: Spontaneous
  Country: FR (occurrence: FR)
  Receive Date: 20160209
  Receipt Date: 20160329
  Transmission Date: 20160526
  Serious: Yes (Hospitalization, Other)
  Sender: FDA-Public Use
  Company Number: FR-ALEXION-A201600774

PATIENT
  Age: 15 Year
  Sex: Female
  Weight: 48 kg

DRUGS (3)
  1. SOLIRIS [Suspect]
     Active Substance: ECULIZUMAB
     Indication: GLOMERULONEPHRITIS MEMBRANOPROLIFERATIVE
     Dosage: 1200 MG, EVERY 15 DAYS
     Route: 042
     Dates: start: 20151026
  2. SOLIRIS [Suspect]
     Active Substance: ECULIZUMAB
     Indication: OFF LABEL USE
  3. ORACILLINE                         /00001801/ [Concomitant]
     Active Substance: PENICILLIN V
     Indication: ANTIBIOTIC PROPHYLAXIS
     Dosage: UNK
     Route: 065
     Dates: start: 20151026

REACTIONS (3)
  - Purpura [Recovered/Resolved]
  - Pyrexia [Unknown]
  - Meningococcal infection [Recovered/Resolved with Sequelae]

NARRATIVE: CASE EVENT DATE: 20160201
